FAERS Safety Report 4865871-3 (Version None)
Quarter: 2005Q4

REPORT INFORMATION
  Report Type: 
  Country: None (occurrence: None)
  Receive Date: 20051219
  Receipt Date: 20051201
  Transmission Date: 20060501
  Serious: Yes (Hospitalization)
  Sender: FDA-Public Use
  Company Number: 8013686

PATIENT
  Age: 35 Year
  Sex: Female

DRUGS (1)
  1. THEOPHYLLINE [Suspect]
     Dosage: 28000 MG ONCE PO
     Route: 048

REACTIONS (14)
  - BLOOD CREATINE PHOSPHOKINASE INCREASED [None]
  - BLOOD PRESSURE DECREASED [None]
  - DRUG TOXICITY [None]
  - FATIGUE [None]
  - HAEMODIALYSIS [None]
  - HYPERGLYCAEMIA [None]
  - HYPOKALAEMIA [None]
  - LEUKOCYTOSIS [None]
  - PALPITATIONS [None]
  - RENAL FAILURE ACUTE [None]
  - RESPIRATORY ALKALOSIS [None]
  - RHABDOMYOLYSIS [None]
  - SINUS TACHYCARDIA [None]
  - SUICIDE ATTEMPT [None]
